FAERS Safety Report 5551717-7 (Version None)
Quarter: 2007Q4

REPORT INFORMATION
  Report Type: 
  Country: None (occurrence: None)
  Receive Date: 20071212
  Receipt Date: 20071203
  Transmission Date: 20080405
  Serious: Yes (Other)
  Sender: FDA-Public Use
  Company Number: BR-PFIZER INC-2007101924

PATIENT
  Sex: Male

DRUGS (2)
  1. EXUBERA [Suspect]
     Indication: DIABETES MELLITUS
     Route: 055
     Dates: start: 20070619, end: 20071020
  2. LANTUS [Concomitant]
     Dates: start: 20051201

REACTIONS (1)
  - BLINDNESS [None]
